FAERS Safety Report 5320779-4 (Version None)
Quarter: 2007Q2

REPORT INFORMATION
  Report Type: 
  Country: None (occurrence: None)
  Receive Date: 20070507
  Receipt Date: 20070425
  Transmission Date: 20071010
  Serious: Yes (Death, Hospitalization)
  Sender: FDA-Public Use
  Company Number: 2005-00688

PATIENT
  Age: 53 Year
  Sex: Male
  Weight: 79.4 kg

DRUGS (8)
  1. VELCADE [Suspect]
     Indication: NON-SMALL CELL LUNG CANCER STAGE IIIA
     Dosage: 1.00 MG
     Dates: start: 20041102, end: 20041203
  2. TAXOL [Suspect]
     Indication: NON-SMALL CELL LUNG CANCER STAGE IIIA
     Dosage: 100.00 MG
     Dates: start: 20041102, end: 20041207
  3. CARBOPLATIN [Suspect]
     Indication: NON-SMALL CELL LUNG CANCER STAGE IIIA
     Dosage: 246 MG
     Dates: start: 20041102, end: 20041207
  4. PROTONIX [Concomitant]
  5. IBUPROFEN [Concomitant]
  6. ALBUTEROL [Concomitant]
  7. ATROVENT [Concomitant]
  8. MORPHINE SULFATE [Concomitant]

REACTIONS (11)
  - ACIDOSIS [None]
  - EMPHYSEMA [None]
  - EMPYEMA [None]
  - HAEMOPTYSIS [None]
  - HYPOTENSION [None]
  - IMPAIRED HEALING [None]
  - PNEUMONIA [None]
  - POST PROCEDURAL COMPLICATION [None]
  - PROCEDURAL COMPLICATION [None]
  - RESPIRATORY FAILURE [None]
  - TUMOUR NECROSIS [None]
